FAERS Safety Report 6119357 (Version 27)
Quarter: 2013Q2

REPORT INFORMATION
  Report Type: Spontaneous
  Country: US (occurrence: US)
  Receive Date: 20060831
  Receipt Date: 20130403
  Transmission Date: 20140414
  Serious: Yes (Hospitalization, Other)
  Sender: FDA-Public Use
  Company Number: PHEH2006US10884

PATIENT
  Age: 43 Year
  Sex: Female
  Weight: 77.1 kg

DRUGS (38)
  1. AREDIA [Suspect]
     Indication: PLASMA CELL MYELOMA
     Dosage: 90 MG, QMO
     Dates: start: 199511
  2. AREDIA [Suspect]
     Dosage: 90 MG, UNK
     Dates: start: 200205
  3. ZOMETA [Suspect]
     Dosage: 4 MG
     Dates: end: 200205
  4. DEXAMETHASONE [Concomitant]
     Indication: PLASMA CELL MYELOMA
     Route: 048
     Dates: start: 199511, end: 20000111
  5. INTERFERON [Concomitant]
     Indication: PLASMA CELL MYELOMA
     Dates: end: 20000111
  6. THALIDOMIDE [Concomitant]
     Indication: PLASMA CELL MYELOMA
     Dosage: 100 MG, QD
     Route: 048
     Dates: start: 20000111
  7. PROCARDIA XL [Concomitant]
     Indication: HYPERTENSION
     Dosage: 30 MG, QD
     Route: 048
  8. BACTRIM DS [Concomitant]
  9. DIFLUCAN [Concomitant]
  10. RESTORIL [Concomitant]
  11. VALTREX [Concomitant]
  12. CLONIDINE [Concomitant]
     Indication: HYPERTENSION
     Dosage: 0.1 MG, QHS
  13. PROCRIT                            /00909301/ [Concomitant]
  14. AXID [Concomitant]
     Dosage: 150 MG, BID
  15. VINCRISTINE [Concomitant]
     Indication: PLASMA CELL MYELOMA
     Dates: start: 199512, end: 199603
  16. ADRIAMYCIN [Concomitant]
     Indication: PLASMA CELL MYELOMA
     Dates: start: 199512, end: 199603
  17. MELPHALAN [Concomitant]
     Dates: start: 199610
  18. MELPHALAN [Concomitant]
     Dates: start: 199702
  19. EPOGEN [Concomitant]
     Indication: ANAEMIA
  20. PROCRIT [Concomitant]
     Route: 042
  21. CATAPRES [Concomitant]
     Dosage: 0.1 MG, QD
     Route: 048
  22. BIDEX [Concomitant]
     Dosage: 400 MG, TID
     Route: 048
  23. NEXIUM [Concomitant]
     Indication: GASTROOESOPHAGEAL REFLUX DISEASE
     Dosage: 20 MG, QD
     Route: 048
  24. NEXIUM [Concomitant]
     Dosage: 40 MG, QD
  25. DIAZEPAM [Concomitant]
     Dosage: 5 MG, BID
     Route: 048
  26. IMURAN [Concomitant]
     Indication: SARCOIDOSIS
     Dosage: 50 MG, TID
  27. FAMOTIDINE [Concomitant]
     Dosage: 20 MG, BID
     Route: 048
  28. LORTAB [Concomitant]
  29. MEPERIDINE W/PROMETHAZINE [Concomitant]
     Route: 048
  30. AZASAN [Concomitant]
     Dosage: 50 MG, QD
  31. AMOXICILLIN [Concomitant]
     Dosage: 875 MG, BID
     Route: 048
  32. TOPROL XL [Concomitant]
     Indication: HYPERTENSION
     Dosage: 50 MG, QD
     Route: 048
  33. TOPROL XL [Concomitant]
     Dosage: 100 MG, QD
  34. ZYRTEC-D [Concomitant]
     Dosage: 120 MG, BID
     Route: 048
  35. BLOOD TRANSFUSION, AUXILIARY PRODUCTS [Concomitant]
  36. AZATHIOPRINE [Concomitant]
     Indication: SARCOIDOSIS
     Dosage: 50 MG, TID
  37. ARANESP [Concomitant]
     Dosage: 300 U, QW2
  38. METHYLPREDNISOLONE [Concomitant]

REACTIONS (137)
  - Pneumonia [Unknown]
  - Osteonecrosis of jaw [Unknown]
  - Pain [Unknown]
  - Anxiety [Unknown]
  - General physical health deterioration [Unknown]
  - Decreased interest [Unknown]
  - Lymphadenopathy [Unknown]
  - Osteomyelitis [Recovering/Resolving]
  - Inflammation [Recovering/Resolving]
  - Excessive granulation tissue [Unknown]
  - Abscess [Unknown]
  - Swelling [Recovering/Resolving]
  - Bone disorder [Unknown]
  - Optic neuritis [Not Recovered/Not Resolved]
  - Blindness [Unknown]
  - Paranasal sinus benign neoplasm [Unknown]
  - Pyrexia [Recovered/Resolved]
  - Visual impairment [Not Recovered/Not Resolved]
  - Tuberculosis [Unknown]
  - Dizziness [Unknown]
  - Sarcoidosis [Unknown]
  - Granuloma [Unknown]
  - Multiple sclerosis [Unknown]
  - Hydrocephalus [Unknown]
  - Hypertension [Unknown]
  - Uterine leiomyoma [Unknown]
  - Osteoarthritis [Unknown]
  - Pathological fracture [Unknown]
  - Renal disorder [Unknown]
  - Aplastic anaemia [Unknown]
  - Abdominal pain [Unknown]
  - Hypokalaemia [Unknown]
  - Pulmonary oedema [Unknown]
  - Right ventricular hypertrophy [Unknown]
  - Pulmonary artery dilatation [Unknown]
  - Gallbladder disorder [Unknown]
  - Pleural effusion [Unknown]
  - Atelectasis [Unknown]
  - Mucosal inflammation [Unknown]
  - Constipation [Unknown]
  - Cardiac failure congestive [Unknown]
  - Blood calcium decreased [Unknown]
  - Blood potassium increased [Unknown]
  - Carbon dioxide increased [Unknown]
  - Blood albumin decreased [Unknown]
  - Fibrocystic breast disease [Unknown]
  - Nasal disorder [Unknown]
  - CSF protein increased [Unknown]
  - Chest pain [Unknown]
  - Rib fracture [Unknown]
  - Musculoskeletal pain [Unknown]
  - Upper respiratory tract infection [Unknown]
  - Sepsis [Unknown]
  - Renal failure chronic [Unknown]
  - Nephrosclerosis [Unknown]
  - Sinus rhythm [Unknown]
  - Monocyte count increased [Unknown]
  - Radiation skin injury [Unknown]
  - Peau d^orange [Unknown]
  - Sinus polyp [Unknown]
  - Nasal septum deviation [Unknown]
  - Weight increased [Unknown]
  - Gait disturbance [Unknown]
  - Bone lesion [Unknown]
  - Pollakiuria [Unknown]
  - Abulia [Unknown]
  - Memory impairment [Unknown]
  - Haematochezia [Unknown]
  - Intestinal polyp [Unknown]
  - Walking aid user [Unknown]
  - Cervicitis [Unknown]
  - Ovarian atrophy [Unknown]
  - Metaplasia [Unknown]
  - Metastases to central nervous system [Unknown]
  - Gastric polyps [Unknown]
  - Arthralgia [Unknown]
  - Insomnia [Unknown]
  - Muscle spasms [Unknown]
  - Muscle atrophy [Unknown]
  - Muscle contractions involuntary [Unknown]
  - Rotator cuff syndrome [Unknown]
  - Skin lesion [Unknown]
  - Lung infiltration [Unknown]
  - Cardiomegaly [Unknown]
  - Proteinuria [Unknown]
  - Gastrooesophageal reflux disease [Unknown]
  - Blood cholesterol increased [Unknown]
  - Osteoporosis [Unknown]
  - Sleep apnoea syndrome [Unknown]
  - Oesophagitis [Unknown]
  - Hiatus hernia [Unknown]
  - Optic atrophy [Unknown]
  - Spinal osteoarthritis [Unknown]
  - Renal cyst [Unknown]
  - Diverticulum intestinal [Unknown]
  - Hypertensive heart disease [Unknown]
  - Bone cancer [Unknown]
  - Transplant rejection [Unknown]
  - Gastritis [Unknown]
  - Proctalgia [Unknown]
  - Bone pain [Unknown]
  - Leukopenia [Unknown]
  - Abdominal mass [Unknown]
  - Urinary tract infection [Unknown]
  - Viral infection [Unknown]
  - Hyperparathyroidism [Unknown]
  - Pharyngeal erythema [Unknown]
  - Brain injury [Unknown]
  - Palpitations [Unknown]
  - Cardiac flutter [Unknown]
  - Vitamin D deficiency [Unknown]
  - Cough [Unknown]
  - Hepatic cyst [Unknown]
  - Lymph node calcification [Unknown]
  - Haemoptysis [Unknown]
  - Retinopathy [Unknown]
  - Neuropathy peripheral [Unknown]
  - Renal injury [Unknown]
  - Sinusitis [Unknown]
  - Pharyngitis [Unknown]
  - Bronchitis [Unknown]
  - Rectal haemorrhage [Unknown]
  - Vertigo [Unknown]
  - Nasal congestion [Unknown]
  - Dyspnoea at rest [Unknown]
  - Dysphagia [Unknown]
  - Dysuria [Unknown]
  - Urinary incontinence [Unknown]
  - Wheezing [Unknown]
  - Fatigue [Unknown]
  - Diarrhoea [Unknown]
  - Oedema [Unknown]
  - Asthenia [Unknown]
  - Night sweats [Unknown]
  - Vision blurred [Unknown]
  - Back pain [Unknown]
  - Blood urine present [Unknown]
